FAERS Safety Report 25849986 (Version 1)
Quarter: 2025Q3

REPORT INFORMATION
  Report Type: Spontaneous
  Country: EU (occurrence: EU)
  Receive Date: 20250926
  Receipt Date: 20250926
  Transmission Date: 20251021
  Serious: Yes (Other)
  Sender: TEVA
  Company Number: None

PATIENT
  Age: 70 Year
  Sex: Male
  Weight: 91 kg

DRUGS (3)
  1. PERINDOPRIL [Suspect]
     Active Substance: PERINDOPRIL
     Indication: Hypertension
     Dosage: 1 X PER DAY 1 PIECE: (ERBUMINE) / BRAND NAME NOT SPECIFIED
     Route: 048
     Dates: start: 20250403, end: 20250717
  2. AMLODIPINE [Suspect]
     Active Substance: AMLODIPINE BESYLATE
     Indication: Hypertension
     Dosage: 1 X 5 MG PER DAY: BRAND NAME NOT SPECIFIED
     Route: 048
     Dates: start: 20250515
  3. AMLODIPINE [Suspect]
     Active Substance: AMLODIPINE BESYLATE
     Indication: Hypertension
     Dosage: 1 X 10 MG PER DAY: BRAND NAME NOT SPECIFIED
     Route: 065

REACTIONS (3)
  - Deafness [Recovering/Resolving]
  - Dizziness [Recovering/Resolving]
  - Tinnitus [Recovering/Resolving]
